FAERS Safety Report 8425374-6 (Version None)
Quarter: 2012Q2

REPORT INFORMATION
  Report Type: 
  Country: None (occurrence: None)
  Receive Date: 20120604
  Receipt Date: 20120525
  Transmission Date: 20120825
  Serious: Yes (Disabling)
  Sender: FDA-Public Use
  Company Number: AUR-APL-2010-01809

PATIENT
  Age: 35 Year
  Sex: Male
  Weight: 80 kg

DRUGS (4)
  1. DIAZEPAM [Concomitant]
  2. PAROXETINE HCL [Suspect]
     Indication: DEPRESSION
     Dosage: 40 MG (40 MG, 1 IN 1 D); 30 MG (1 D)
     Dates: start: 20100605
  3. PAROXETINE HCL [Suspect]
     Indication: DEPRESSION
     Dosage: 40 MG (40 MG, 1 IN 1 D); 30 MG (1 D)
     Dates: start: 20100605
  4. RISPERIDONE [Suspect]
     Indication: PRODUCT USED FOR UNKNOWN INDICATION
     Dosage: 1 MG (1 MG, 1 IN 1D)
     Dates: start: 20100605

REACTIONS (8)
  - HYPERHIDROSIS [None]
  - RESTLESSNESS [None]
  - FATIGUE [None]
  - DIZZINESS [None]
  - TREMOR [None]
  - INSOMNIA [None]
  - IMPAIRED WORK ABILITY [None]
  - MALAISE [None]
